FAERS Safety Report 10078758 (Version 1)
Quarter: 2014Q2

REPORT INFORMATION
  Report Type: Spontaneous
  Country: US (occurrence: US)
  Receive Date: 20140415
  Receipt Date: 20140415
  Transmission Date: 20141212
  Serious: Yes (Death)
  Sender: FDA-Public Use
  Company Number: US-PFIZER INC-2014103070

PATIENT
  Age: 85 Year
  Sex: Male

DRUGS (3)
  1. XALKORI [Suspect]
     Indication: BRONCHIAL NEOPLASM
     Dosage: 250 MG, 2X/DAY
     Route: 048
     Dates: start: 20140317, end: 20140325
  2. XALKORI [Suspect]
     Indication: LUNG NEOPLASM
  3. XALKORI [Suspect]
     Indication: BONE CANCER

REACTIONS (1)
  - Death [Fatal]
